FAERS Safety Report 7618555-2 (Version None)
Quarter: 2011Q3

REPORT INFORMATION
  Report Type: 
  Country: None (occurrence: None)
  Receive Date: 20110718
  Receipt Date: 20110705
  Transmission Date: 20111222
  Serious: Yes (Other)
  Sender: FDA-Public Use
  Company Number: GB-JNJFOC-20110704659

PATIENT
  Age: 54 Year
  Sex: Female
  Weight: 89 kg

DRUGS (6)
  1. ZOPICLONE [Concomitant]
     Indication: DEPENDENCE
  2. TRAMADOL HCL [Suspect]
     Indication: ANALGESIC THERAPY
     Route: 048
     Dates: start: 20110603, end: 20110610
  3. ACETAMINOPHEN AND CODEINE PHOSPHATE [Concomitant]
     Indication: ANALGESIC THERAPY
  4. LANSOPRAZOLE [Concomitant]
     Indication: GASTROOESOPHAGEAL REFLUX DISEASE
  5. CYCLIZINE [Concomitant]
     Indication: NAUSEA
  6. DIAZEPAM [Concomitant]
     Indication: DEPENDENCE
     Dates: start: 20010201, end: 20110608

REACTIONS (1)
  - INCREASED APPETITE [None]
